FAERS Safety Report 6140749-6 (Version None)
Quarter: 2009Q2

REPORT INFORMATION
  Report Type: 
  Country: None (occurrence: None)
  Receive Date: 20090402
  Receipt Date: 20090325
  Transmission Date: 20091009
  Serious: Yes (Other)
  Sender: FDA-Public Use
  Company Number: PHHY2009AU11486

PATIENT
  Sex: Male

DRUGS (3)
  1. RITALIN [Suspect]
     Indication: ATTENTION DEFICIT/HYPERACTIVITY DISORDER
     Dosage: UNK
     Dates: start: 19960101
  2. ANTIDEPRESSANTS [Suspect]
  3. VALPRO [Concomitant]

REACTIONS (3)
  - DRUG INEFFECTIVE [None]
  - MANIA [None]
  - OBSESSIVE-COMPULSIVE DISORDER [None]
